FAERS Safety Report 16850426 (Version 1)
Quarter: 2019Q3

REPORT INFORMATION
  Report Type: Spontaneous
  Country: CA (occurrence: CA)
  Receive Date: 20190925
  Receipt Date: 20190925
  Transmission Date: 20191005
  Serious: Yes (Hospitalization, Other)
  Sender: FDA-Public Use
  Company Number: CA-PFIZER INC-2019410293

PATIENT
  Age: 62 Year
  Sex: Male

DRUGS (3)
  1. CIPROFLOXACIN. [Suspect]
     Active Substance: CIPROFLOXACIN
     Indication: URETHRITIS
     Dosage: UNK
  2. GOSERELIN [Suspect]
     Active Substance: GOSERELIN
     Indication: PROSTATE CANCER
     Dosage: UNK
  3. AMOXICILLIN TRIHYDRATE AND CLAVULANATE POTASSIUM [Concomitant]
     Active Substance: AMOXICILLIN\CLAVULANATE POTASSIUM
     Indication: URETHRITIS
     Dosage: UNK

REACTIONS (5)
  - Sleep apnoea syndrome [Recovered/Resolved]
  - Diverticulitis [Recovered/Resolved]
  - Metastases to bone [Recovered/Resolved]
  - Tinnitus [Recovered/Resolved]
  - Prostatic specific antigen increased [Recovered/Resolved]
